FAERS Safety Report 4645681-2 (Version None)
Quarter: 2005Q2

REPORT INFORMATION
  Report Type: 
  Country: None (occurrence: None)
  Receive Date: 20050331
  Receipt Date: 20050217
  Transmission Date: 20051028
  Serious: No
  Sender: FDA-Public Use
  Company Number: 05P-163-0291159-00

PATIENT
  Age: 58 Year
  Sex: Female
  Weight: 58.9676 kg

DRUGS (6)
  1. HUMIRA [Suspect]
     Indication: RHEUMATOID ARTHRITIS
     Dosage: 40 MG, 1 IN 2 WK, SUBCUTANEOUS;  40 MG, 1 IN 10 D, SUBCUTANEOUS
     Route: 058
     Dates: start: 20040101, end: 20050101
  2. HUMIRA [Suspect]
     Indication: RHEUMATOID ARTHRITIS
     Dosage: 40 MG, 1 IN 2 WK, SUBCUTANEOUS;  40 MG, 1 IN 10 D, SUBCUTANEOUS
     Route: 058
     Dates: start: 20050101, end: 20050126
  3. PREDNISONE [Concomitant]
  4. THIAMAZOLE [Concomitant]
  5. ESTROGENS CONJUGATED [Concomitant]
  6. ARTHROTEC [Concomitant]

REACTIONS (3)
  - BRONCHITIS [None]
  - INFLUENZA LIKE ILLNESS [None]
  - SINUSITIS [None]
